FAERS Safety Report 25034413 (Version 1)
Quarter: 2025Q1

REPORT INFORMATION
  Report Type: Spontaneous
  Country: US (occurrence: US)
  Receive Date: 20250304
  Receipt Date: 20250304
  Transmission Date: 20250409
  Serious: No
  Sender: CHIESI
  Company Number: US-CHIESI-2024CHF07962

PATIENT
  Age: 13 Year
  Sex: Male

DRUGS (1)
  1. ELFABRIO [Suspect]
     Active Substance: PEGUNIGALSIDASE ALFA-IWXJ
     Indication: Product used for unknown indication
     Dosage: UNK, QOW
     Route: 042
     Dates: start: 2024

REACTIONS (3)
  - Blood pressure increased [Unknown]
  - Pain [Unknown]
  - Off label use [Unknown]

NARRATIVE: CASE EVENT DATE: 20240101
